FAERS Safety Report 8543782-X (Version None)
Quarter: 2012Q3

REPORT INFORMATION
  Report Type: 
  Country: None (occurrence: None)
  Receive Date: 20120727
  Receipt Date: 20120724
  Transmission Date: 20120928
  Serious: Yes (Other)
  Sender: FDA-Public Use
  Company Number: US-PFIZER INC-2012178952

PATIENT
  Sex: Female

DRUGS (7)
  1. TRILIPIX [Suspect]
     Dosage: UNK
  2. TRICOR [Suspect]
     Dosage: UNK
  3. SPIRONOLACTONE [Suspect]
     Dosage: UNK
  4. ACETYLSALICYLIC ACID SRT [Suspect]
     Dosage: UNK
  5. AMLODIPINE BESYLATE [Suspect]
     Dosage: UNK
  6. DYRENIUM [Suspect]
     Dosage: UNK
  7. CARVEDILOL [Suspect]
     Dosage: UNK

REACTIONS (6)
  - DISCOMFORT [None]
  - MUSCULAR WEAKNESS [None]
  - MUSCLE SPASMS [None]
  - CARDIOSPASM [None]
  - LARYNGOSPASM [None]
  - BREAST CANCER FEMALE [None]
